FAERS Safety Report 14319154 (Version 1)
Quarter: 2017Q4

REPORT INFORMATION
  Report Type: Spontaneous
  Country: AU (occurrence: AU)
  Receive Date: 20171222
  Receipt Date: 20171222
  Transmission Date: 20180321
  Serious: Yes (Other)
  Sender: FDA-Public Use
  Company Number: AU-TEVA-2017-AU-834231

PATIENT
  Age: 18 Year
  Sex: Female

DRUGS (1)
  1. NUVIGIL [Suspect]
     Active Substance: ARMODAFINIL
     Dosage: DOSAGE UNKNOWN
     Route: 048

REACTIONS (3)
  - Pregnancy on oral contraceptive [Unknown]
  - Drug interaction [Unknown]
  - Maternal exposure during pregnancy [Unknown]
